FAERS Safety Report 9959922 (Version 1)
Quarter: 2014Q1

REPORT INFORMATION
  Report Type: Report from Study
  Country: US (occurrence: US)
  Receive Date: 20140305
  Receipt Date: 20140305
  Transmission Date: 20141002
  Serious: No
  Sender: FDA-Public Use
  Company Number: US-ABBVIE-13P-163-1104614-00

PATIENT
  Age: 59 Year
  Sex: Female

DRUGS (11)
  1. HUMIRA [Suspect]
     Indication: RHEUMATOID ARTHRITIS
     Dosage: STARTER DOSE
     Dates: start: 20130530
  2. NORPRAMIN [Concomitant]
     Indication: IRRITABLE BOWEL SYNDROME
     Route: 048
  3. BENTYL [Concomitant]
     Indication: IRRITABLE BOWEL SYNDROME
     Route: 048
  4. CYMBALTA [Concomitant]
     Indication: ARTHRITIS
     Route: 048
  5. FOLIC ACID [Concomitant]
     Indication: PRODUCT USED FOR UNKNOWN INDICATION
     Route: 048
  6. PERCOCET [Concomitant]
     Indication: PAIN
     Dosage: 5/325 MG AS REQUIRED
  7. XANAX [Concomitant]
     Indication: PRODUCT USED FOR UNKNOWN INDICATION
     Dosage: 0.5 MG ONCE DAILY IF NEEDED
     Route: 048
  8. MIRALAX [Concomitant]
     Indication: PRODUCT USED FOR UNKNOWN INDICATION
  9. ASTELIN [Concomitant]
     Indication: SEASONAL ALLERGY
     Route: 045
  10. PRILOSEC [Concomitant]
     Indication: IRRITABLE BOWEL SYNDROME
  11. PRILOSEC [Concomitant]
     Indication: DYSPEPSIA

REACTIONS (1)
  - Headache [Not Recovered/Not Resolved]
